FAERS Safety Report 13767440 (Version 1)
Quarter: 2017Q3

REPORT INFORMATION
  Report Type: Spontaneous
  Country: US (occurrence: US)
  Receive Date: 20170719
  Receipt Date: 20170719
  Transmission Date: 20171127
  Serious: No
  Sender: FDA-Public Use
  Company Number: US-SHIRE-US201714207

PATIENT

DRUGS (1)
  1. XIIDRA [Suspect]
     Active Substance: LIFITEGRAST
     Indication: PRODUCT USED FOR UNKNOWN INDICATION
     Dosage: 2 GTT, 2X/DAY:BID
     Route: 047
     Dates: start: 20170629

REACTIONS (4)
  - Visual impairment [Unknown]
  - Instillation site complication [Unknown]
  - Instillation site reaction [Unknown]
  - Instillation site pain [Unknown]

NARRATIVE: CASE EVENT DATE: 20170629
